FAERS Safety Report 7460497-X (Version None)
Quarter: 2011Q2

REPORT INFORMATION
  Report Type: 
  Country: None (occurrence: None)
  Receive Date: 20110505
  Receipt Date: 20110502
  Transmission Date: 20111010
  Serious: Yes (Hospitalization, Other)
  Sender: FDA-Public Use
  Company Number: US-PFIZER INC-2011012897

PATIENT
  Sex: Female

DRUGS (23)
  1. ELAVIL [Concomitant]
     Indication: MIGRAINE
     Dosage: UNK
     Dates: start: 20030101
  2. VICODIN [Concomitant]
     Indication: PAIN
     Dosage: UNK
     Dates: start: 20040101, end: 20090101
  3. MUCINEX [Concomitant]
     Indication: RHINITIS ALLERGIC
  4. TRIMOX [Concomitant]
     Indication: INFECTION
     Dosage: UNK
     Dates: start: 20040101, end: 20090101
  5. ALBUTEROL [Concomitant]
     Indication: BRONCHITIS
     Dosage: UNK
     Dates: start: 20040101
  6. VICODIN [Concomitant]
     Indication: MIGRAINE
  7. MUCINEX [Concomitant]
     Indication: PYREXIA
  8. ELAVIL [Concomitant]
     Indication: SLEEP DISORDER
  9. ATIVAN [Concomitant]
     Indication: DEPRESSION
  10. RELAFEN [Concomitant]
     Indication: PAIN
     Dosage: UNK
     Dates: start: 20050101, end: 20090101
  11. WELLBUTRIN [Concomitant]
     Indication: ANXIETY
  12. ELAVIL [Concomitant]
     Indication: DEPRESSION
  13. VITAMIN B-12 [Concomitant]
     Indication: FATIGUE
     Dosage: UNK
     Dates: start: 20030101
  14. ALBUTEROL [Concomitant]
     Indication: CHRONIC OBSTRUCTIVE PULMONARY DISEASE
  15. CHANTIX [Suspect]
     Indication: SMOKING CESSATION THERAPY
     Dosage: STARTER PACK
     Dates: start: 20071201, end: 20080701
  16. WELLBUTRIN [Concomitant]
     Indication: SMOKING CESSATION THERAPY
     Dosage: UNK
     Dates: start: 20040101, end: 20090101
  17. WELLBUTRIN [Concomitant]
     Indication: DEPRESSION
  18. ELAVIL [Concomitant]
     Indication: ANXIETY
  19. ATIVAN [Concomitant]
     Indication: ANXIETY
  20. NASACORT [Concomitant]
     Indication: RHINITIS ALLERGIC
     Dosage: UNK
     Dates: start: 20030101, end: 20090101
  21. MUCINEX [Concomitant]
     Indication: COUGH
  22. ATIVAN [Concomitant]
     Indication: MIGRAINE
     Dosage: UNK
     Dates: start: 20030101, end: 20090101
  23. MUCINEX [Concomitant]
     Indication: BRONCHITIS
     Dosage: UNK
     Dates: start: 20030101, end: 20090101

REACTIONS (7)
  - SUICIDE ATTEMPT [None]
  - LOSS OF CONSCIOUSNESS [None]
  - ANXIETY [None]
  - FALL [None]
  - INTENTIONAL OVERDOSE [None]
  - DEPRESSION [None]
  - COGNITIVE DISORDER [None]
